FAERS Safety Report 5804067-5 (Version None)
Quarter: 2008Q3

REPORT INFORMATION
  Report Type: 
  Country: None (occurrence: None)
  Receive Date: 20080707
  Receipt Date: 20080707
  Transmission Date: 20090109
  Serious: Yes (Disabling)
  Sender: FDA-Public Use
  Company Number: None

PATIENT
  Age: 45 Year
  Sex: Female

DRUGS (9)
  1. AREDIA [Suspect]
     Indication: BREAST CANCER METASTATIC
     Dosage: 90 MG MONTHLY IV
     Route: 042
     Dates: start: 20000101, end: 20040101
  2. ZOMETA [Suspect]
     Dosage: 4MG MONTHLY IV
     Route: 042
     Dates: start: 20040101, end: 20080301
  3. DILANTIN [Concomitant]
  4. PEPCID [Concomitant]
  5. PERCOCET [Concomitant]
  6. RESTORIL [Concomitant]
  7. XANAX [Concomitant]
  8. XELODA [Concomitant]
  9. IXEMPRA KIT [Concomitant]

REACTIONS (4)
  - BONE DISORDER [None]
  - JAW DISORDER [None]
  - PAIN IN JAW [None]
  - SWELLING [None]
